FAERS Safety Report 10254687 (Version 44)
Quarter: 2019Q4

REPORT INFORMATION
  Report Type: Report from Study
  Country: CA (occurrence: CA)
  Receive Date: 20140624
  Receipt Date: 20191101
  Transmission Date: 20200122
  Serious: Yes (Other)
  Sender: FDA-Public Use
  Company Number: CA-ROCHE-1312102

PATIENT
  Age: 58 Year
  Sex: Female
  Weight: 89 kg

DRUGS (5)
  1. ACTEMRA [Suspect]
     Active Substance: TOCILIZUMAB
     Indication: RHEUMATOID ARTHRITIS
     Route: 042
     Dates: start: 20131104, end: 20180823
  2. HYDROXYCHLOROQUINE [Concomitant]
     Active Substance: HYDROXYCHLOROQUINE
  3. ACTEMRA [Suspect]
     Active Substance: TOCILIZUMAB
     Route: 042
     Dates: start: 20180920, end: 20190207
  4. NAPROXEN. [Concomitant]
     Active Substance: NAPROXEN
  5. ACTEMRA [Suspect]
     Active Substance: TOCILIZUMAB
     Route: 042
     Dates: start: 20190404

REACTIONS (32)
  - Ear infection [Unknown]
  - Gastrooesophageal reflux disease [Not Recovered/Not Resolved]
  - Menopausal symptoms [Not Recovered/Not Resolved]
  - Influenza [Unknown]
  - Blood pressure increased [Unknown]
  - Weight increased [Unknown]
  - Gastroenteritis [Recovered/Resolved]
  - Stress [Unknown]
  - White blood cell count decreased [Unknown]
  - Blood cholesterol abnormal [Recovering/Resolving]
  - Fatigue [Recovered/Resolved]
  - Oropharyngeal pain [Unknown]
  - Bronchitis [Recovered/Resolved]
  - Nasopharyngitis [Not Recovered/Not Resolved]
  - Insomnia [Unknown]
  - Blood pressure systolic increased [Unknown]
  - Hepatic enzyme increased [Unknown]
  - Abdominal pain [Recovered/Resolved]
  - Diarrhoea [Recovered/Resolved]
  - Pain in extremity [Unknown]
  - Blood pressure increased [Unknown]
  - Weight decreased [Not Recovered/Not Resolved]
  - Muscle strain [Not Recovered/Not Resolved]
  - Blood pressure systolic abnormal [Unknown]
  - Productive cough [Not Recovered/Not Resolved]
  - Osteoarthritis [Unknown]
  - Heart rate increased [Unknown]
  - Joint swelling [Not Recovered/Not Resolved]
  - Influenza [Recovered/Resolved]
  - Nasal congestion [Not Recovered/Not Resolved]
  - Hypertension [Recovering/Resolving]
  - Headache [Recovered/Resolved]

NARRATIVE: CASE EVENT DATE: 20131104
